FAERS Safety Report 5772937-2 (Version None)
Quarter: 2008Q2

REPORT INFORMATION
  Report Type: 
  Country: None (occurrence: None)
  Receive Date: 20080613
  Receipt Date: 20080602
  Transmission Date: 20081010
  Serious: Yes (Hospitalization, Other)
  Sender: FDA-Public Use
  Company Number: DE-PFIZER INC-2008047291

PATIENT
  Age: 9 Year
  Sex: Female

DRUGS (7)
  1. PHENYTOIN [Suspect]
     Indication: CONVULSION
  2. FLUCONAZOLE [Suspect]
  3. TACROLIMUS [Suspect]
     Indication: PROPHYLAXIS AGAINST GRAFT VERSUS HOST DISEASE
  4. CYCLOSPORINE [Suspect]
     Indication: PROPHYLAXIS AGAINST GRAFT VERSUS HOST DISEASE
  5. BUSULFAN [Suspect]
  6. FLUDARABINE PHOSPHATE [Suspect]
  7. ANTITHYMOCYTE IMMUNOGLOBULIN [Suspect]

REACTIONS (4)
  - BONE MARROW FAILURE [None]
  - CHRONIC GRAFT VERSUS HOST DISEASE [None]
  - CONVULSION [None]
  - DRUG RASH WITH EOSINOPHILIA AND SYSTEMIC SYMPTOMS [None]
